FAERS Safety Report 9790148 (Version 1)
Quarter: 2013Q4

REPORT INFORMATION
  Report Type: Spontaneous
  Country: US (occurrence: US)
  Receive Date: 20131231
  Receipt Date: 20131231
  Transmission Date: 20140711
  Serious: Yes (Other)
  Sender: FDA-Public Use
  Company Number: US-AMGEN-USASP2013091260

PATIENT
  Age: 36 Year
  Sex: Male

DRUGS (1)
  1. ENBREL [Suspect]
     Indication: RHEUMATOID ARTHRITIS
     Dosage: 50 MG, QWK
     Route: 058
     Dates: start: 20130402

REACTIONS (4)
  - Gastrointestinal haemorrhage [Not Recovered/Not Resolved]
  - Abdominal mass [Not Recovered/Not Resolved]
  - Lethargy [Not Recovered/Not Resolved]
  - Abdominal pain upper [Not Recovered/Not Resolved]
